FAERS Safety Report 14163542 (Version 4)
Quarter: 2018Q3

REPORT INFORMATION
  Report Type: Report from Study
  Country: US (occurrence: US)
  Receive Date: 20171106
  Receipt Date: 20180820
  Transmission Date: 20181010
  Serious: Yes (Hospitalization, Other)
  Sender: FDA-Public Use
  Company Number: US-ACTELION-A-NJ2017-161940

PATIENT
  Age: 10 Year
  Sex: Female
  Weight: 38.55 kg

DRUGS (2)
  1. ADCIRCA [Concomitant]
     Active Substance: TADALAFIL
  2. OPSUMIT [Suspect]
     Active Substance: MACITENTAN
     Indication: PULMONARY HYPERTENSION
     Dosage: 10 MG, QD
     Route: 048

REACTIONS (13)
  - Dyspnoea [Unknown]
  - Adenotonsillectomy [Unknown]
  - Diarrhoea [Unknown]
  - Tooth extraction [Unknown]
  - Hypersensitivity [Unknown]
  - Vomiting [Unknown]
  - Rhinorrhoea [Unknown]
  - Viral infection [Unknown]
  - Headache [Unknown]
  - Dysphagia [Unknown]
  - Oropharyngeal pain [Unknown]
  - Oxygen saturation decreased [Unknown]
  - Weight decreased [Unknown]

NARRATIVE: CASE EVENT DATE: 20171019
